FAERS Safety Report 14261881 (Version 2)
Quarter: 2017Q4

REPORT INFORMATION
  Report Type: Spontaneous
  Country: US (occurrence: US)
  Receive Date: 20171208
  Receipt Date: 20171227
  Transmission Date: 20180321
  Serious: No
  Sender: FDA-Public Use
  Company Number: US-009507513-1711USA012401

PATIENT
  Sex: Female

DRUGS (2)
  1. ZEPATIER [Suspect]
     Active Substance: ELBASVIR\GRAZOPREVIR
     Indication: HEPATITIS C
     Dosage: DOSE: 50-100 MG, 1 TABLET BY MOUTH EVERY DAY
     Route: 048
     Dates: start: 201709
  2. REBETOL [Suspect]
     Active Substance: RIBAVIRIN
     Route: 048

REACTIONS (3)
  - Product physical issue [Unknown]
  - Headache [Unknown]
  - Adverse event [Unknown]
